FAERS Safety Report 7407673-X (Version None)
Quarter: 2011Q2

REPORT INFORMATION
  Report Type: 
  Country: None (occurrence: None)
  Receive Date: 20110412
  Receipt Date: 20101210
  Transmission Date: 20111010
  Serious: Yes (Other)
  Sender: FDA-Public Use
  Company Number: US-BAYER-2010-004180

PATIENT
  Age: 59 Year
  Sex: Female

DRUGS (4)
  1. GEMCITABINE [Suspect]
     Indication: BILE DUCT CANCER
     Dosage: UNK
     Dates: start: 20100330
  2. SORAFENIB (RAF KINASE INHIBITOR) [Suspect]
     Indication: BILE DUCT CANCER
     Dosage: UNK
     Route: 048
     Dates: start: 20100330
  3. CISPLATIN [Suspect]
     Indication: BILE DUCT CANCER
     Dosage: UNK
     Dates: start: 20100330
  4. SORAFENIB (RAF KINASE INHIBITOR) [Suspect]
     Dosage: UNK
     Route: 048
     Dates: end: 20101102

REACTIONS (1)
  - DEEP VEIN THROMBOSIS [None]
